FAERS Safety Report 5057882-2 (Version None)
Quarter: 2006Q3

REPORT INFORMATION
  Report Type: 
  Country: None (occurrence: None)
  Receive Date: 20060721
  Receipt Date: 20060324
  Transmission Date: 20061208
  Serious: No
  Sender: FDA-Public Use
  Company Number: US-GLAXOSMITHKLINE-A0598946A

PATIENT
  Age: 66 Year
  Sex: Female

DRUGS (5)
  1. AVANDIA [Suspect]
     Dosage: 8MG PER DAY
     Route: 048
     Dates: start: 20060301, end: 20060321
  2. METFORMIN [Concomitant]
  3. PRAVACHOL [Concomitant]
  4. FOSAMAX [Concomitant]
  5. AVAPRO [Concomitant]

REACTIONS (1)
  - FEELING ABNORMAL [None]
